FAERS Safety Report 20082984 (Version 1)
Quarter: 2021Q4

REPORT INFORMATION
  Report Type: Spontaneous
  Country: US (occurrence: US)
  Receive Date: 20211117
  Receipt Date: 20211117
  Transmission Date: 20220303
  Serious: No
  Sender: FDA-Public Use
  Company Number: US-009507513-2111USA004613

PATIENT
  Sex: Female

DRUGS (2)
  1. VERQUVO [Suspect]
     Active Substance: VERICIGUAT
     Route: 048
  2. MIDODRINE [Concomitant]
     Active Substance: MIDODRINE

REACTIONS (1)
  - Blood pressure decreased [Unknown]
